FAERS Safety Report 8376081-X (Version None)
Quarter: 2012Q2

REPORT INFORMATION
  Report Type: 
  Country: None (occurrence: None)
  Receive Date: 20120522
  Receipt Date: 20120517
  Transmission Date: 20120825
  Serious: Yes (Other)
  Sender: FDA-Public Use
  Company Number: PHEH2012US010375

PATIENT
  Sex: Male

DRUGS (1)
  1. FOCALIN XR [Suspect]

REACTIONS (2)
  - BACK INJURY [None]
  - ACCIDENT AT WORK [None]
